FAERS Safety Report 13442563 (Version 1)
Quarter: 2017Q2

REPORT INFORMATION
  Report Type: Spontaneous
  Country: US (occurrence: US)
  Receive Date: 20170414
  Receipt Date: 20170414
  Transmission Date: 20170830
  Serious: No
  Sender: FDA-Public Use
  Company Number: None

PATIENT
  Age: 48 Year
  Sex: Male
  Weight: 56 kg

DRUGS (13)
  1. CLOFAZIMINE [Concomitant]
     Active Substance: CLOFAZIMINE
  2. FUROSEMIDE. [Concomitant]
     Active Substance: FUROSEMIDE
  3. AZITHROMYCIN ANHYDROUS. [Concomitant]
     Active Substance: AZITHROMYCIN ANHYDROUS
  4. ETHAMBUTOL [Concomitant]
     Active Substance: ETHAMBUTOL HYDROCHLORIDE
  5. METOPROLOL. [Concomitant]
     Active Substance: METOPROLOL
  6. PREDNISONE. [Concomitant]
     Active Substance: PREDNISONE
  7. LIPOSOMAL AMPHOTERICIN [Concomitant]
     Active Substance: AMPHOTERICIN B
  8. POSACONAZOLE [Suspect]
     Active Substance: POSACONAZOLE
     Dates: start: 20170125
  9. VORICONAZOLE. [Concomitant]
     Active Substance: VORICONAZOLE
  10. CARVEDILOL. [Concomitant]
     Active Substance: CARVEDILOL
  11. POSACONAZOLE [Concomitant]
     Active Substance: POSACONAZOLE
  12. LEVOFLOXACIN. [Concomitant]
     Active Substance: LEVOFLOXACIN
  13. MICAFUNGIN [Concomitant]
     Active Substance: MICAFUNGIN

REACTIONS (9)
  - Pericardial effusion [None]
  - Fatigue [None]
  - Dyspnoea [None]
  - Cardiac failure congestive [None]
  - Asthenia [None]
  - Haemoptysis [None]
  - Bronchopulmonary aspergillosis [None]
  - Pleuritic pain [None]
  - Fluid overload [None]
